FAERS Safety Report 8389264 (Version 2)
Quarter: 2012Q4

REPORT INFORMATION
  Report Type: Report from Study
  Country: CA (occurrence: CA)
  Receive Date: 20120203
  Receipt Date: 20120906
  Transmission Date: 20130627
  Serious: Yes (Hospitalization)
  Sender: FDA-Public Use
  Company Number: CA-JNJFOC-20120112911

PATIENT
  Age: 59 Year
  Sex: Male

DRUGS (8)
  1. STELARA [Suspect]
     Indication: PSORIASIS
     Route: 058
     Dates: start: 20090813
  2. ALL OTHER THERAPEUTIC PRODUCTS [Concomitant]
     Route: 061
  3. NAPROXEN EC [Concomitant]
     Route: 048
  4. HYDROCHLOROTHIAZIDE [Concomitant]
     Route: 048
  5. CELEBREX [Concomitant]
     Route: 048
  6. FLUOCINONIDE [Concomitant]
     Route: 061
  7. AMLODIPINE [Concomitant]
     Route: 048
  8. CANESTEN HC [Concomitant]
     Route: 061

REACTIONS (1)
  - Cellulitis [Recovered/Resolved]
